FAERS Safety Report 17611749 (Version 2)
Quarter: 2020Q2

REPORT INFORMATION
  Report Type: Spontaneous
  Country: US (occurrence: US)
  Receive Date: 20200401
  Receipt Date: 20200626
  Transmission Date: 20200713
  Serious: Yes (Hospitalization)
  Sender: FDA-Public Use
  Company Number: US-ALKERMES INC.-ALK-2019-004448

PATIENT
  Age: 29 Year
  Sex: Female

DRUGS (4)
  1. VIVITROL [Suspect]
     Active Substance: NALTREXONE
     Indication: DRUG DEPENDENCE
     Dosage: 380 MG, QMO
     Route: 030
     Dates: start: 20190903, end: 20190903
  2. VIVITROL [Suspect]
     Active Substance: NALTREXONE
     Dosage: 380 MG, QMO
     Route: 030
  3. VIVITROL [Suspect]
     Active Substance: NALTREXONE
     Dosage: 380 MG, QMO
     Route: 030
     Dates: start: 20190719, end: 20190719
  4. VIVITROL [Suspect]
     Active Substance: NALTREXONE
     Dosage: 380 MG, QMO
     Route: 030
     Dates: start: 2016, end: 2016

REACTIONS (11)
  - Diarrhoea [Unknown]
  - Dizziness [Unknown]
  - Drug dependence [Recovered/Resolved]
  - Drug use disorder [Recovering/Resolving]
  - Vomiting [Unknown]
  - Anxiety [Recovered/Resolved]
  - Euphoric mood [Recovered/Resolved]
  - Gastroenteritis viral [Unknown]
  - Feeling abnormal [Recovered/Resolved]
  - Muscle rigidity [Recovered/Resolved]
  - Product dose omission [Recovered/Resolved]

NARRATIVE: CASE EVENT DATE: 20190904
